FAERS Safety Report 12838533 (Version 1)
Quarter: 2016Q4

REPORT INFORMATION
  Report Type: Report from Study
  Country: CA (occurrence: CA)
  Receive Date: 20161012
  Receipt Date: 20161012
  Transmission Date: 20170207
  Serious: Yes (Other)
  Sender: FDA-Public Use
  Company Number: CA-UCBSA-091494

PATIENT
  Age: 66 Year
  Sex: Female
  Weight: 66 kg

DRUGS (11)
  1. CERTOLIZUMAB PEGOL RA [Suspect]
     Active Substance: CERTOLIZUMAB PEGOL
     Indication: RHEUMATOID ARTHRITIS
     Dosage: 200 MG, EV 2 WEEKS(QOW)
     Route: 058
     Dates: start: 20121105, end: 20130624
  2. CANDESARTEN [Concomitant]
     Indication: HYPERTENSION
     Dosage: 8 MG, ONCE DAILY (QD)
     Route: 048
  3. CLONAZEPAM. [Concomitant]
     Active Substance: CLONAZEPAM
     Dosage: DOSE: 1 MG QHS (AT BEDTIME)
  4. ZOPLICONE [Concomitant]
     Active Substance: ZOPICLONE
     Dosage: DOSE: 7.5 MG QHS (BEDTIME)
  5. CYMBALTA [Concomitant]
     Active Substance: DULOXETINE HYDROCHLORIDE
     Indication: DEPRESSION
     Dosage: 60 MG, ONCE DAILY (QD)
     Route: 048
  6. CEREZYME [Concomitant]
     Active Substance: IMIGLUCERASE
     Indication: GAUCHER^S DISEASE
     Dosage: DOSE: 3200 UNITS EVERY 2 WEEKS
     Route: 042
  7. SULFASALAZINE. [Concomitant]
     Active Substance: SULFASALAZINE
     Indication: RHEUMATOID ARTHRITIS
     Dosage: 1000 MG, 2X/DAY (BID)
     Route: 048
  8. OXYCONTIN [Concomitant]
     Active Substance: OXYCODONE HYDROCHLORIDE
     Dosage: DOSE: 10 MG IR (8/DAY)
  9. CERTOLIZUMAB PEGOL RA [Suspect]
     Active Substance: CERTOLIZUMAB PEGOL
     Dosage: DOSE: 400 MG EVRY 2 WEEKS X 3
     Route: 058
     Dates: start: 20120928, end: 20121022
  10. PREDNISONE. [Concomitant]
     Active Substance: PREDNISONE
     Indication: RHEUMATOID ARTHRITIS
     Dosage: 10 MG, ONCE DAILY (QD)
     Route: 048
  11. OXYNEO [Concomitant]
     Active Substance: OXYCODONE
     Dosage: DOSE: 30 MG QID PRN

REACTIONS (2)
  - Upper respiratory tract infection [Recovering/Resolving]
  - Lower respiratory tract infection [Recovering/Resolving]

NARRATIVE: CASE EVENT DATE: 20130703
